FAERS Safety Report 24435407 (Version 3)
Quarter: 2025Q1

REPORT INFORMATION
  Report Type: Spontaneous
  Country: IT (occurrence: IT)
  Receive Date: 20241015
  Receipt Date: 20250216
  Transmission Date: 20250409
  Serious: Yes (Other)
  Sender: BEIGENE
  Company Number: None

PATIENT
  Age: 76 Year

DRUGS (4)
  1. BRUKINSA [Suspect]
     Active Substance: ZANUBRUTINIB
     Indication: Waldenstrom^s macroglobulinaemia
  2. BRUKINSA [Suspect]
     Active Substance: ZANUBRUTINIB
     Route: 048
  3. BRUKINSA [Suspect]
     Active Substance: ZANUBRUTINIB
     Route: 048
  4. BRUKINSA [Suspect]
     Active Substance: ZANUBRUTINIB

REACTIONS (2)
  - Skin swelling [Recovering/Resolving]
  - Skin cancer [Not Recovered/Not Resolved]
